FAERS Safety Report 23107868 (Version 1)
Quarter: 2023Q4

REPORT INFORMATION
  Report Type: Spontaneous
  Country: US (occurrence: US)
  Receive Date: 20231026
  Receipt Date: 20231026
  Transmission Date: 20240109
  Serious: Yes (Hospitalization, Other)
  Sender: FDA-Public Use
  Company Number: US-MLMSERVICE-20161229-0555438-1

PATIENT

DRUGS (2)
  1. MEDROXYPROGESTERONE ACETATE [Suspect]
     Active Substance: MEDROXYPROGESTERONE ACETATE
     Indication: Menometrorrhagia
     Dosage: UNK
     Route: 065
  2. KETOCONAZOLE [Suspect]
     Active Substance: KETOCONAZOLE
     Indication: Rash
     Dosage: LIBERAL AMOUNTS
     Route: 061

REACTIONS (4)
  - Adrenal insufficiency [Recovering/Resolving]
  - Gait inability [Unknown]
  - Fatigue [Unknown]
  - Dizziness [Unknown]
